FAERS Safety Report 24002671 (Version 5)
Quarter: 2024Q3

REPORT INFORMATION
  Report Type: Report from Study
  Country: PT (occurrence: PT)
  Receive Date: 20240624
  Receipt Date: 20240711
  Transmission Date: 20241017
  Serious: Yes (Hospitalization, Other)
  Sender: ABBVIE
  Company Number: PT-ABBVIE-5794760

PATIENT
  Age: 73 Year
  Sex: Male
  Weight: 81 kg

DRUGS (7)
  1. CARBIDOPA\LEVODOPA [Suspect]
     Active Substance: CARBIDOPA\LEVODOPA
     Indication: Parkinson^s disease
     Dosage: 20 MG + 5 MG?MORN:15CC;MAIN:5.6CC/H;EXTRA:2CC
     Route: 050
     Dates: start: 20230227
  2. CARBIDOPA\LEVODOPA [Suspect]
     Active Substance: CARBIDOPA\LEVODOPA
     Dosage: 20 MG + 5 MG?MORN:19CC;MAIN:8CC/H;EXTRA:4CC
     Route: 050
     Dates: start: 20240531
  3. ACETAMINOPHEN [Concomitant]
     Active Substance: ACETAMINOPHEN
     Indication: Arthralgia
     Dosage: TIME INTERVAL: 0.33333333 DAYS: FORM STRENGTH: 1 GRAM?3 TABLET BEFORE DUODOPA
     Route: 048
  4. ROPINIROLE [Concomitant]
     Active Substance: ROPINIROLE
     Indication: Parkinson^s disease
     Dosage: TIME INTERVAL: 0.33333333 DAYS: FORM STRENGTH: 1 MILLIGRAM 3 TABLET, BEFORE DUODOPA
     Route: 048
  5. METAMIZOLE MAGNESIUM [Concomitant]
     Active Substance: METAMIZOLE MAGNESIUM
     Indication: Arthralgia
     Dosage: TIME INTERVAL: 0.33333333 DAYS: 3 TABLET, FORM STRENGTH: 575 MILLIGRAM, START DATE TEXT: BEFORE D...
     Route: 048
  6. CARBIDOPA LEVODOPA [Concomitant]
     Active Substance: CARBIDOPA\LEVODOPA
     Indication: Parkinson^s disease
     Dosage: 200/50MG, LEVODOPA+CARBIDOPA CR, FREQUENCY TEXT: ONCE AT BEDTIME, START DATE TEXT: BEFORE DUODOPA
     Route: 048
  7. Daflon [Concomitant]
     Indication: Product used for unknown indication
     Dosage: TIME INTERVAL: 0.33333333 DAYS: 3 TABLET?START DATE TEXT: BEFORE DUODOPA
     Route: 048

REACTIONS (13)
  - Anaemia [Recovering/Resolving]
  - Weight decreased [Not Recovered/Not Resolved]
  - Hypophagia [Recovered/Resolved]
  - Alanine aminotransferase increased [Recovered/Resolved]
  - Insomnia [Recovered/Resolved]
  - Fall [Recovered/Resolved]
  - Gamma-glutamyltransferase increased [Recovered/Resolved]
  - Confusional state [Recovered/Resolved]
  - Stoma site ulcer [Not Recovered/Not Resolved]
  - C-reactive protein increased [Recovering/Resolving]
  - Blood lactate dehydrogenase increased [Recovered/Resolved]
  - Red blood cell sedimentation rate increased [Recovering/Resolving]
  - Prothrombin time prolonged [Not Recovered/Not Resolved]

NARRATIVE: CASE EVENT DATE: 20240101
